FAERS Safety Report 18278314 (Version 1)
Quarter: 2020Q3

REPORT INFORMATION
  Report Type: Spontaneous
  Country: CA (occurrence: CA)
  Receive Date: 20200917
  Receipt Date: 20200917
  Transmission Date: 20201103
  Serious: Yes (Death, Disabling)
  Sender: FDA-Public Use
  Company Number: CA-JNJFOC-A-NJ2019-193077

PATIENT
  Age: 80 Year
  Sex: Female
  Weight: 36.28 kg

DRUGS (24)
  1. TRACLEER [Suspect]
     Active Substance: BOSENTAN
     Indication: PULMONARY ARTERIAL HYPERTENSION
     Dosage: 125 MG, BID
     Route: 048
     Dates: start: 20150801, end: 20200819
  2. VITAMIN D [Concomitant]
     Active Substance: VITAMIN D NOS
     Dosage: UNK, Q1WEEK
  3. UPTRAVI [Suspect]
     Active Substance: SELEXIPAG
     Indication: PULMONARY ARTERIAL HYPERTENSION
     Dosage: 200 MCG, BID
     Route: 048
     Dates: start: 20190617
  4. ACTONEL [Concomitant]
     Active Substance: RISEDRONATE SODIUM
  5. ATIVAN [Concomitant]
     Active Substance: LORAZEPAM
  6. TYLENOL [Concomitant]
     Active Substance: ACETAMINOPHEN
     Dosage: 325 MG, PRN
  7. LASIX [Concomitant]
     Active Substance: FUROSEMIDE
  8. IRBESARTAN. [Concomitant]
     Active Substance: IRBESARTAN
  9. ADCIRCA [Concomitant]
     Active Substance: TADALAFIL
     Dosage: UNK
     Dates: end: 20200819
  10. ASPIRIN. [Concomitant]
     Active Substance: ASPIRIN
  11. ADCIRCA [Concomitant]
     Active Substance: TADALAFIL
     Dosage: UNK
     Dates: end: 20200819
  12. PANTOLOC [Concomitant]
     Active Substance: PANTOPRAZOLE SODIUM
  13. IRBESARTAN. [Concomitant]
     Active Substance: IRBESARTAN
  14. ASPRIN [Concomitant]
     Active Substance: ASPIRIN
  15. ACTONEL [Concomitant]
     Active Substance: RISEDRONATE SODIUM
  16. LASIX [Concomitant]
     Active Substance: FUROSEMIDE
  17. PANTOLOC                           /01263204/ [Concomitant]
     Active Substance: PANTOPRAZOLE SODIUM
  18. AVALIDE [Concomitant]
     Active Substance: HYDROCHLOROTHIAZIDE\IRBESARTAN
  19. AVALIDE [Concomitant]
     Active Substance: HYDROCHLOROTHIAZIDE\IRBESARTAN
  20. ATIVAN [Concomitant]
     Active Substance: LORAZEPAM
  21. VITAMIN D [Concomitant]
     Active Substance: VITAMIN D NOS
     Dosage: UNK, Q1WEEK
  22. CALCIUM [Concomitant]
     Active Substance: CALCIUM
  23. TYLENOL [Concomitant]
     Active Substance: ACETAMINOPHEN
     Dosage: 325 MG, PRN
  24. CALCIUM [Concomitant]
     Active Substance: CALCIUM

REACTIONS (10)
  - Peripheral swelling [Not Recovered/Not Resolved]
  - Decreased appetite [Unknown]
  - Gastrooesophageal reflux disease [Not Recovered/Not Resolved]
  - Dyspnoea [Not Recovered/Not Resolved]
  - Pain in extremity [Not Recovered/Not Resolved]
  - Dyspepsia [Unknown]
  - Death [Fatal]
  - Neuropathy peripheral [Not Recovered/Not Resolved]
  - Fatigue [Unknown]
  - Palliative care [Unknown]

NARRATIVE: CASE EVENT DATE: 20190617
